FAERS Safety Report 5147611-6 (Version None)
Quarter: 2006Q4

REPORT INFORMATION
  Report Type: 
  Country: None (occurrence: None)
  Receive Date: 20061110
  Receipt Date: 20061102
  Transmission Date: 20070319
  Serious: Yes (Hospitalization, Other)
  Sender: FDA-Public Use
  Company Number: US-JNJFOC-20060904225

PATIENT
  Sex: Female

DRUGS (10)
  1. REMICADE [Suspect]
     Route: 042
  2. REMICADE [Suspect]
     Route: 042
  3. REMICADE [Suspect]
     Route: 042
  4. REMICADE [Suspect]
     Indication: COLITIS ULCERATIVE
     Route: 042
  5. PREDNISONE TAB [Concomitant]
     Indication: COLITIS ULCERATIVE
  6. XIRTAXIN [Concomitant]
     Indication: COLITIS ULCERATIVE
  7. ASACOL [Concomitant]
     Indication: COLITIS ULCERATIVE
  8. PRILOSEC [Concomitant]
     Indication: GASTROOESOPHAGEAL REFLUX DISEASE
  9. IMURAN [Concomitant]
     Indication: COLITIS ULCERATIVE
  10. CANASA [Concomitant]
     Indication: COLITIS ULCERATIVE

REACTIONS (4)
  - EYELID OEDEMA [None]
  - OESOPHAGEAL ULCER [None]
  - PHARYNGITIS [None]
  - SINUSITIS [None]
